FAERS Safety Report 7360957-6 (Version None)
Quarter: 2011Q1

REPORT INFORMATION
  Report Type: 
  Country: None (occurrence: None)
  Receive Date: 20110318
  Receipt Date: 20110228
  Transmission Date: 20110831
  Serious: Yes (Hospitalization, Other)
  Sender: FDA-Public Use
  Company Number: US-BAYER-201039318NA

PATIENT
  Sex: Female
  Weight: 77 kg

DRUGS (6)
  1. YASMIN [Suspect]
     Indication: CONTRACEPTION
     Dosage: UNK
     Route: 048
     Dates: start: 20031201
  2. OCELLA [Concomitant]
     Indication: CONTRACEPTION
     Dosage: UNK
     Route: 048
     Dates: start: 20090401, end: 20090801
  3. YAZ [Concomitant]
     Indication: CONTRACEPTION
     Dosage: UNK
     Route: 048
     Dates: start: 20070301, end: 20090301
  4. YASMIN [Suspect]
     Indication: MENSTRUAL CYCLE MANAGEMENT
  5. YAZ [Concomitant]
     Indication: MENSTRUAL CYCLE MANAGEMENT
  6. OCELLA [Concomitant]
     Indication: MENSTRUAL CYCLE MANAGEMENT

REACTIONS (3)
  - CHOLECYSTITIS CHRONIC [None]
  - FAT INTOLERANCE [None]
  - PAIN [None]
